FAERS Safety Report 23549384 (Version 2)
Quarter: 2024Q1

REPORT INFORMATION
  Report Type: Spontaneous
  Country: DE (occurrence: DE)
  Receive Date: 20240221
  Receipt Date: 20240307
  Transmission Date: 20240410
  Serious: Yes (Death, Life-Threatening, Hospitalization, Other)
  Sender: FDA-Public Use
  Company Number: None

PATIENT
  Sex: Female
  Weight: 67 kg

DRUGS (1)
  1. ENHERTU [Suspect]
     Active Substance: FAM-TRASTUZUMAB DERUXTECAN-NXKI
     Indication: Breast cancer
     Dosage: UNK
     Route: 065
     Dates: start: 20221130

REACTIONS (6)
  - Septic shock [Fatal]
  - Intestinal perforation [Fatal]
  - Acute respiratory distress syndrome [Fatal]
  - Intestinal ulcer [Fatal]
  - Duodenal ulcer [Fatal]
  - Pneumonitis [Fatal]

NARRATIVE: CASE EVENT DATE: 20231220
